FAERS Safety Report 21180233 (Version 2)
Quarter: 2022Q3

REPORT INFORMATION
  Report Type: Spontaneous
  Country: DE (occurrence: DE)
  Receive Date: 20220806
  Receipt Date: 20220810
  Transmission Date: 20221027
  Serious: Yes (Life-Threatening, Hospitalization, Other)
  Sender: FDA-Public Use
  Company Number: DE-AMK-259346

PATIENT
  Age: 91 Year
  Sex: Female

DRUGS (10)
  1. ALENDRONIC ACID [Suspect]
     Active Substance: ALENDRONIC ACID
     Indication: Osteoporosis
     Dosage: 70 MILLIGRAM
     Route: 048
  2. RISPERIDONE [Concomitant]
     Active Substance: RISPERIDONE
     Indication: Product used for unknown indication
     Dosage: 0.5 MILLIGRAM, TWO TIMES A DAY (1-0-1)
     Route: 065
  3. POLYETHYLENE GLYCOLS [Concomitant]
     Active Substance: POLYETHYLENE GLYCOLS
     Indication: Product used for unknown indication
     Dosage: 1 DOSAGE FORM, ONCE A DAY (1-0-0)
     Route: 065
  4. METHIMAZOLE [Concomitant]
     Active Substance: METHIMAZOLE
     Indication: Product used for unknown indication
     Dosage: 5 MILLIGRAM, ONCE A DAY (1-0-0)
     Route: 065
  5. BISOPROLOL [Concomitant]
     Active Substance: BISOPROLOL
     Indication: Product used for unknown indication
     Dosage: 2.5 MILLIGRAM, TWO TIMES A DAY (1-0-1)
     Route: 065
  6. SODIUM PERCHLORATE [Concomitant]
     Active Substance: SODIUM PERCHLORATE
     Indication: Product used for unknown indication
     Dosage: 300 MILLIGRAM, FOUR TIMES/DAY (1-1-1)
     Route: 065
  7. CYANOCOBALAMIN [Concomitant]
     Active Substance: CYANOCOBALAMIN
     Indication: Product used for unknown indication
     Dosage: 3000 MICROGRAM, EVERY WEEK (3X W?CHENTLICH)
     Route: 065
  8. FENTANYL [Concomitant]
     Active Substance: FENTANYL
     Indication: Spinal fracture
     Dosage: UNK
     Route: 065
  9. FENTANYL [Concomitant]
     Active Substance: FENTANYL
     Indication: Back pain
  10. FOLIC ACID [Concomitant]
     Active Substance: FOLIC ACID
     Indication: Product used for unknown indication
     Dosage: 5 MILLIGRAM, ONCE A DAY (5MG/D)
     Route: 065

REACTIONS (4)
  - Pneumothorax [Not Recovered/Not Resolved]
  - Foreign body in throat [Not Recovered/Not Resolved]
  - Pneumomediastinum [Not Recovered/Not Resolved]
  - Oesophageal perforation [Not Recovered/Not Resolved]

NARRATIVE: CASE EVENT DATE: 20220715
